FAERS Safety Report 7776977-3 (Version None)
Quarter: 2011Q3

REPORT INFORMATION
  Report Type: 
  Country: None (occurrence: None)
  Receive Date: 20110926
  Receipt Date: 20110718
  Transmission Date: 20111222
  Serious: Yes (Other)
  Sender: FDA-Public Use
  Company Number: DE-MYLANLABS-2011S1012318

PATIENT
  Age: 69 Year
  Sex: Male
  Weight: 133 kg

DRUGS (5)
  1. FUROSEMIDE [Suspect]
     Indication: PRODUCT USED FOR UNKNOWN INDICATION
     Route: 048
  2. BIOMO-LIPON [Suspect]
     Indication: PRODUCT USED FOR UNKNOWN INDICATION
     Route: 048
  3. METFORMIN HCL [Suspect]
     Indication: HYPERGLYCAEMIA
     Route: 048
     Dates: start: 20110530, end: 20110701
  4. BISOPROLOL FUMARATE [Suspect]
     Indication: PRODUCT USED FOR UNKNOWN INDICATION
     Route: 048
  5. MARCUMAR [Suspect]
     Indication: ARRHYTHMIA
     Route: 048
     Dates: start: 20110101

REACTIONS (1)
  - COAGULOPATHY [None]
